FAERS Safety Report 7088795-2 (Version None)
Quarter: 2010Q4

REPORT INFORMATION
  Report Type: 
  Country: None (occurrence: None)
  Receive Date: 20101108
  Receipt Date: 20101026
  Transmission Date: 20110411
  Serious: Yes (Other)
  Sender: FDA-Public Use
  Company Number: PHHY2010JP57199

PATIENT
  Age: 67 Year
  Sex: Female

DRUGS (1)
  1. TEGRETOL [Suspect]
     Dosage: UNK
     Dates: start: 20080801, end: 20080901

REACTIONS (3)
  - DRUG ERUPTION [None]
  - ERYTHEMA MULTIFORME [None]
  - SJOGREN'S SYNDROME [None]
